FAERS Safety Report 15832652 (Version 6)
Quarter: 2019Q2

REPORT INFORMATION
  Report Type: Report from Study
  Country: US (occurrence: US)
  Receive Date: 20190116
  Receipt Date: 20190503
  Transmission Date: 20190711
  Serious: Yes (Death, Hospitalization, Disabling)
  Sender: FDA-Public Use
  Company Number: US-ACTELION-A-NJ2018-169331

PATIENT
  Age: 70 Year
  Sex: Male
  Weight: 66.21 kg

DRUGS (16)
  1. VELETRI [Suspect]
     Active Substance: EPOPROSTENOL
     Indication: PULMONARY ARTERIAL HYPERTENSION
     Dosage: 73 NG/KG, PER MIN
     Route: 042
  2. VELETRI [Suspect]
     Active Substance: EPOPROSTENOL
     Dosage: 84 NG/KG, PER MIN
     Route: 042
  3. PROBIOTIC [Concomitant]
     Active Substance: PROBIOTICS NOS
     Dosage: 1 CAP QD
     Route: 048
  4. MEMANTINE. [Concomitant]
     Active Substance: MEMANTINE
     Dosage: 10 MG, BID
     Route: 048
  5. SEROQUEL [Concomitant]
     Active Substance: QUETIAPINE FUMARATE
     Dosage: 20 MG, BID
     Route: 048
  6. TORSEMIDE. [Concomitant]
     Active Substance: TORSEMIDE
     Dosage: 60 MG QOD/40 MG QOD
     Route: 048
  7. ADCIRCA [Concomitant]
     Active Substance: TADALAFIL
  8. METOPROLOL TARTRATE. [Concomitant]
     Active Substance: METOPROLOL TARTRATE
     Dosage: 25 MG, BID
  9. OPSUMIT [Suspect]
     Active Substance: MACITENTAN
     Indication: PULMONARY ARTERIAL HYPERTENSION
     Dosage: 10 MG, QD
     Route: 048
     Dates: start: 20170727, end: 20190401
  10. ADEMPAS [Concomitant]
     Active Substance: RIOCIGUAT
     Dosage: 1.5 MG
     Route: 065
  11. ASPIRIN. [Concomitant]
     Active Substance: ASPIRIN
     Dosage: 81 MG, QD
     Route: 048
  12. PROTONIX [Concomitant]
     Active Substance: PANTOPRAZOLE SODIUM
     Dosage: 40 MG, QD
     Route: 048
  13. ROSUVASTATIN. [Concomitant]
     Active Substance: ROSUVASTATIN
     Dosage: 10 MG QOD, 5 MG QOD
     Route: 048
  14. VELETRI [Suspect]
     Active Substance: EPOPROSTENOL
     Dosage: 92 NG/KG, PER MIN
     Route: 042
     Dates: start: 20180221
  15. ADEMPAS [Concomitant]
     Active Substance: RIOCIGUAT
     Dosage: 1.5 MG, UNK
     Dates: start: 20180615
  16. KLOR-CON [Concomitant]
     Active Substance: POTASSIUM CHLORIDE
     Dosage: 40 MEQ, QD
     Route: 048

REACTIONS (17)
  - Pneumonia [Fatal]
  - Pyrexia [Fatal]
  - Nausea [Unknown]
  - Diarrhoea [Unknown]
  - Chest pain [Unknown]
  - Viral infection [Unknown]
  - Pain in jaw [Not Recovered/Not Resolved]
  - Dyspnoea exertional [Unknown]
  - Blood pressure abnormal [Unknown]
  - Pulmonary arterial hypertension [Fatal]
  - Disease progression [Not Recovered/Not Resolved]
  - Dyspnoea [Fatal]
  - Hypotension [Unknown]
  - Ascites [Not Recovered/Not Resolved]
  - Back pain [Unknown]
  - Abdominal distension [Unknown]
  - Malaise [Not Recovered/Not Resolved]

NARRATIVE: CASE EVENT DATE: 20180614
